FAERS Safety Report 6722680-8 (Version None)
Quarter: 2010Q2

REPORT INFORMATION
  Report Type: 
  Country: None (occurrence: None)
  Receive Date: 20100512
  Receipt Date: 20100429
  Transmission Date: 20101027
  Serious: Yes (Death, Other)
  Sender: FDA-Public Use
  Company Number: US-PFIZER INC-2009309834

PATIENT
  Sex: Male
  Weight: 104.31 kg

DRUGS (16)
  1. REVATIO [Suspect]
     Indication: PULMONARY HYPERTENSION
     Dosage: 20 MG, 3X/DAY
     Route: 048
     Dates: start: 20091001
  2. REVATIO [Suspect]
     Dosage: UNK
     Dates: start: 20090101
  3. TRACLEER [Suspect]
     Indication: PULMONARY HYPERTENSION
     Dosage: 125 MG, 1X/DAY
  4. TRACLEER [Suspect]
     Indication: CHRONIC OBSTRUCTIVE PULMONARY DISEASE
  5. TRACLEER [Suspect]
     Indication: ASBESTOSIS
  6. TRACLEER [Suspect]
     Indication: EMPHYSEMA
  7. LISINOPRIL [Concomitant]
     Dosage: 10 MG, 1X/DAY
  8. FUROSEMIDE [Concomitant]
     Dosage: 40 MG, 1X/DAY
  9. PROPAFENONE [Concomitant]
     Dosage: 150 MG, 2X/DAY
  10. ATENOLOL [Concomitant]
     Dosage: 50 MG, 2X/DAY
  11. ADVAIR DISKUS 100/50 [Concomitant]
     Dosage: 250/50MCG 2 X DAY
     Route: 055
  12. ALBUTEROL [Concomitant]
     Indication: DYSPNOEA
     Dosage: 2 PUFFS 4 X DAY AS NEEDED
  13. IPRATROPIUM BROMIDE AND ALBUTEROL SULFATE [Concomitant]
     Dosage: UNK
  14. PREVACID [Concomitant]
     Dosage: 30 MG, 1X/DAY
  15. FERROUS SULFATE [Concomitant]
     Dosage: 65 MG, 1X/DAY
  16. OXYGEN [Concomitant]

REACTIONS (16)
  - ANAEMIA [None]
  - ARRHYTHMIA [None]
  - ASTHENIA [None]
  - ATRIAL FIBRILLATION [None]
  - BLOOD ALKALINE PHOSPHATASE INCREASED [None]
  - CARDIAC MURMUR [None]
  - DYSPNOEA [None]
  - FATIGUE [None]
  - HYPOXIA [None]
  - INFECTION [None]
  - MONOCYTE COUNT INCREASED [None]
  - OEDEMA PERIPHERAL [None]
  - PULMONARY ARTERIAL HYPERTENSION [None]
  - SINUSITIS [None]
  - SLEEP APNOEA SYNDROME [None]
  - THROMBOCYTOPENIA [None]
